FAERS Safety Report 4568155-6 (Version None)
Quarter: 2005Q1

REPORT INFORMATION
  Report Type: 
  Country: None (occurrence: None)
  Receive Date: 20050128
  Receipt Date: 20050120
  Transmission Date: 20050727
  Serious: Yes (Other)
  Sender: FDA-Public Use
  Company Number: S05-USA-00320-01

PATIENT
  Age: 55 Year
  Sex: Female

DRUGS (3)
  1. LEXAPRO [Suspect]
     Indication: MAJOR DEPRESSION
     Dosage: 10 MG QD PO
     Route: 048
     Dates: start: 20040315, end: 20050116
  2. XANAX [Concomitant]
  3. NEXIUM [Concomitant]

REACTIONS (3)
  - CONVULSION [None]
  - TREATMENT NONCOMPLIANCE [None]
  - VOMITING [None]
